FAERS Safety Report 7742625-1 (Version None)
Quarter: 2011Q3

REPORT INFORMATION
  Report Type: 
  Country: None (occurrence: None)
  Receive Date: 20110912
  Receipt Date: 20110901
  Transmission Date: 20111222
  Serious: Yes (Other)
  Sender: FDA-Public Use
  Company Number: CA-JNJFOC-20110901934

PATIENT
  Sex: Female
  Weight: 110 kg

DRUGS (12)
  1. REMICADE [Suspect]
     Route: 042
     Dates: start: 20110414
  2. REMICADE [Suspect]
     Route: 042
     Dates: start: 20110217
  3. METHOTREXATE [Suspect]
     Route: 030
     Dates: end: 20110301
  4. REMICADE [Suspect]
     Route: 042
     Dates: start: 20110106
  5. DICLOFENAC SODIUM [Concomitant]
     Indication: ANKYLOSING SPONDYLITIS
     Route: 048
  6. REMICADE [Suspect]
     Indication: ANKYLOSING SPONDYLITIS
     Route: 042
     Dates: start: 20110721
  7. REMICADE [Suspect]
     Route: 042
     Dates: start: 20110120
  8. RABEPRAZOLE SODIUM [Concomitant]
     Indication: GASTROOESOPHAGEAL REFLUX DISEASE
     Route: 048
  9. ZOLEDRONOC ACID [Concomitant]
     Indication: OSTEOPENIA
     Route: 042
     Dates: start: 20100701
  10. METHOTREXATE [Suspect]
     Indication: PRODUCT USED FOR UNKNOWN INDICATION
     Route: 048
     Dates: start: 20110501, end: 20110819
  11. METHOTREXATE [Suspect]
     Route: 030
  12. REMICADE [Suspect]
     Route: 042
     Dates: start: 20110526

REACTIONS (7)
  - MALAISE [None]
  - NAUSEA [None]
  - HEPATIC ENZYME INCREASED [None]
  - ABDOMINAL DISCOMFORT [None]
  - DIARRHOEA [None]
  - CYSTITIS [None]
  - RED BLOOD CELL SEDIMENTATION RATE INCREASED [None]
